FAERS Safety Report 14233099 (Version 1)
Quarter: 2017Q4

REPORT INFORMATION
  Report Type: Report from Study
  Country: BR (occurrence: BR)
  Receive Date: 20171129
  Receipt Date: 20171129
  Transmission Date: 20180321
  Serious: Yes (Hospitalization, Other)
  Sender: FDA-Public Use
  Company Number: BR-JNJFOC-20171133141

PATIENT
  Sex: Female
  Weight: 49 kg

DRUGS (1)
  1. SIMPONI [Suspect]
     Active Substance: GOLIMUMAB
     Indication: RHEUMATOID ARTHRITIS
     Route: 058
     Dates: start: 20160331, end: 2016

REACTIONS (7)
  - Gastrointestinal disorder [Unknown]
  - Malnutrition [Unknown]
  - Malaise [Unknown]
  - Hand deformity [Not Recovered/Not Resolved]
  - Hypophagia [Unknown]
  - Renal disorder [Unknown]
  - Lung disorder [Unknown]

NARRATIVE: CASE EVENT DATE: 2016
